FAERS Safety Report 6303869-9 (Version None)
Quarter: 2009Q3

REPORT INFORMATION
  Report Type: 
  Country: None (occurrence: None)
  Receive Date: 20090805
  Receipt Date: 20090724
  Transmission Date: 20100115
  Serious: Yes (Hospitalization)
  Sender: FDA-Public Use
  Company Number: 2009PV038709

PATIENT
  Age: 56 Year
  Sex: Female
  Weight: 74.8435 kg

DRUGS (11)
  1. SYMLIN [Suspect]
     Indication: TYPE 1 DIABETES MELLITUS
     Dosage: 60 MCG; TID, 60 MCG; TID; SC, 15 MCG; TID; SC
     Route: 058
     Dates: start: 20090301, end: 20090301
  2. SYMLIN [Suspect]
     Indication: TYPE 1 DIABETES MELLITUS
     Dosage: 60 MCG; TID, 60 MCG; TID; SC, 15 MCG; TID; SC
     Route: 058
     Dates: start: 20090301, end: 20090301
  3. SYMLIN [Suspect]
     Indication: TYPE 1 DIABETES MELLITUS
     Dosage: 60 MCG; TID, 60 MCG; TID; SC, 15 MCG; TID; SC
     Route: 058
     Dates: start: 20090301, end: 20090701
  4. HUMALOG [Concomitant]
  5. SYNTHROID [Concomitant]
  6. CLINORIL [Concomitant]
  7. ANTIGLAUCOMA [Concomitant]
  8. PREPARATIONS AND MIOTICS [Concomitant]
  9. LIPITOR [Concomitant]
  10. ACETAMINOPHEN [Concomitant]
  11. ESTROGEN NOS [Concomitant]

REACTIONS (5)
  - BACK PAIN [None]
  - ILEUS [None]
  - INFREQUENT BOWEL MOVEMENTS [None]
  - MOVEMENT DISORDER [None]
  - NEPHROLITHIASIS [None]
